FAERS Safety Report 9162611 (Version 1)
Quarter: 2013Q1

REPORT INFORMATION
  Report Type: Spontaneous
  Country: GR (occurrence: GR)
  Receive Date: 20130314
  Receipt Date: 20130314
  Transmission Date: 20140127
  Serious: Yes (Death)
  Sender: FDA-Public Use
  Company Number: GR-PFIZER INC-2013081556

PATIENT
  Sex: 0

DRUGS (1)
  1. DOXORUBICIN HCL [Suspect]
     Indication: HEPATIC CANCER
     Dosage: UNK

REACTIONS (1)
  - Post procedural sepsis [Fatal]
